FAERS Safety Report 8536379-9 (Version None)
Quarter: 2012Q3

REPORT INFORMATION
  Report Type: 
  Country: None (occurrence: None)
  Receive Date: 20120725
  Receipt Date: 20120720
  Transmission Date: 20120928
  Serious: Yes (Other)
  Sender: FDA-Public Use
  Company Number: US-PFIZER INC-2012176521

PATIENT
  Sex: Female
  Weight: 86.2 kg

DRUGS (2)
  1. ZOLOFT [Suspect]
     Indication: DEPRESSION
     Dosage: UNK, 1X/DAY
     Route: 048
  2. FOSAMAX [Suspect]
     Indication: BONE DEVELOPMENT ABNORMAL
     Dosage: UNK, WEEKLY
     Route: 048
     Dates: start: 20070101, end: 20070101

REACTIONS (3)
  - GASTRIC DISORDER [None]
  - ULCER HAEMORRHAGE [None]
  - HAEMORRHAGE [None]
